FAERS Safety Report 20990606 (Version 2)
Quarter: 2022Q2

REPORT INFORMATION
  Report Type: Other
  Country: CA (occurrence: None)
  Receive Date: 20220622
  Receipt Date: 20220624
  Transmission Date: 20220720
  Serious: No
  Sender: FDA-Public Use
  Company Number: CA-ROCHE-3121746

PATIENT
  Sex: Female

DRUGS (5)
  1. OCREVUS [Suspect]
     Active Substance: OCRELIZUMAB
     Indication: Relapsing-remitting multiple sclerosis
     Dosage: 300 MG AT DAY 0 AND 14, THEN 600 MG EVERY 6 MONTH
     Route: 042
     Dates: start: 20210817
  2. COVID-19 VACCINE [Concomitant]
     Dosage: 1ST DOSE
     Dates: start: 202106
  3. COVID-19 VACCINE [Concomitant]
     Dosage: PFIZER 2ND DOSE
     Dates: start: 202107
  4. NEXIUM [Concomitant]
     Active Substance: ESOMEPRAZOLE MAGNESIUM
  5. ALLOPURINOL [Concomitant]
     Active Substance: ALLOPURINOL

REACTIONS (2)
  - COVID-19 [Recovered/Resolved]
  - Gout [Unknown]
